FAERS Safety Report 4312783-X (Version None)
Quarter: 2004Q1

REPORT INFORMATION
  Report Type: 
  Country: None (occurrence: None)
  Receive Date: 20040304
  Receipt Date: 20040205
  Transmission Date: 20041129
  Serious: Yes (Other)
  Sender: FDA-Public Use
  Company Number: APCDSS2003000230

PATIENT
  Age: 30 Year
  Sex: Male

DRUGS (8)
  1. REMICADE [Suspect]
     Indication: CROHN'S DISEASE
     Dosage: 220 MG, INTRAVENOUS
     Route: 042
     Dates: start: 20021218
  2. REMICADE [Suspect]
     Indication: CROHN'S DISEASE
     Dosage: 220 MG, INTRAVENOUS
     Route: 042
     Dates: start: 20030730
  3. REMICADE [Suspect]
     Indication: CROHN'S DISEASE
     Dosage: 220 MG, INTRAVENOUS
     Route: 042
     Dates: start: 20030813
  4. REMICADE [Suspect]
     Indication: CROHN'S DISEASE
     Dosage: 220 MG, INTRAVENOUS
     Route: 042
     Dates: start: 20031219
  5. AMANTADINE HCL [Concomitant]
  6. PL (OTHER COLD COMBINATION PREPARATIONS) [Concomitant]
  7. AMPHOTERICIN B [Concomitant]
  8. FLUCONAZOLE [Concomitant]

REACTIONS (5)
  - INFLUENZA [None]
  - LICHENIFICATION [None]
  - ODYNOPHAGIA [None]
  - OESOPHAGEAL CANDIDIASIS [None]
  - UPPER RESPIRATORY TRACT INFLAMMATION [None]
